FAERS Safety Report 18334556 (Version 1)
Quarter: 2020Q4

REPORT INFORMATION
  Report Type: Spontaneous
  Country: CN (occurrence: CN)
  Receive Date: 20201001
  Receipt Date: 20201001
  Transmission Date: 20210113
  Serious: Yes (Other)
  Sender: FDA-Public Use
  Company Number: CN-SUN PHARMACEUTICAL INDUSTRIES LTD-2020R1-262499

PATIENT
  Age: 59 Year
  Sex: Female

DRUGS (5)
  1. CYCLOPHOSPHAMIDE. [Suspect]
     Active Substance: CYCLOPHOSPHAMIDE
     Indication: MUCINOUS BREAST CARCINOMA
     Dosage: 600MG/M2
     Route: 042
  2. TRASTUZUMAB. [Suspect]
     Active Substance: TRASTUZUMAB
     Dosage: FOLLOWED BY 6MG/KG EVERY 3 WEEKS
     Route: 042
  3. DOCETAXEL. [Suspect]
     Active Substance: DOCETAXEL
     Indication: MUCINOUS BREAST CARCINOMA
     Dosage: (75MG/M2)
     Route: 042
  4. LETROZOLE. [Suspect]
     Active Substance: LETROZOLE
     Indication: MUCINOUS BREAST CARCINOMA
     Dosage: 2.5 MILLIGRAM, DAILY
     Route: 065
  5. TRASTUZUMAB. [Suspect]
     Active Substance: TRASTUZUMAB
     Indication: MUCINOUS BREAST CARCINOMA
     Dosage: 8MG/KG (LOADING DOSE) ON DAY 1
     Route: 042

REACTIONS (1)
  - Neutropenia [Unknown]
